FAERS Safety Report 4575747-7 (Version None)
Quarter: 2005Q1

REPORT INFORMATION
  Report Type: 
  Country: None (occurrence: None)
  Receive Date: 20050209
  Receipt Date: 20050131
  Transmission Date: 20050727
  Serious: Yes (Other)
  Sender: FDA-Public Use
  Company Number: US-GLAXOSMITHKLINE-A0542966A

PATIENT
  Age: 85 Year
  Sex: Male
  Weight: 65.9 kg

DRUGS (5)
  1. ECOTRIN ADULT LOW STRENGTH TABLETS [Suspect]
     Indication: ANALGESIC INTERVENTION SUPPORTIVE THERAPY
  2. PLENDIL [Concomitant]
  3. SYNTHROID [Concomitant]
     Route: 048
  4. HYDROCHLOROTHIAZIDE [Concomitant]
  5. SAW PALMETTO [Concomitant]

REACTIONS (2)
  - CATARACT [None]
  - MACULAR DEGENERATION [None]
